FAERS Safety Report 5120135-8 (Version None)
Quarter: 2006Q4

REPORT INFORMATION
  Report Type: 
  Country: None (occurrence: None)
  Receive Date: 20061002
  Receipt Date: 20061002
  Transmission Date: 20070319
  Serious: Yes (Other)
  Sender: FDA-Public Use
  Company Number: None

PATIENT
  Sex: Female
  Weight: 54.4316 kg

DRUGS (3)
  1. SERTRALINE HCL 100 MG TEVA, USA [Suspect]
     Indication: ANXIETY
     Dosage: 100 MG ONCE A DAY PO
     Route: 048
     Dates: start: 20060901, end: 20060929
  2. SERTRALINE HCL 100 MG TEVA, USA [Suspect]
     Indication: DEPRESSION
     Dosage: 100 MG ONCE A DAY PO
     Route: 048
     Dates: start: 20060901, end: 20060929
  3. SERTRALINE HCL 100 MG TEVA, USA [Suspect]
     Indication: OBSESSIVE-COMPULSIVE DISORDER
     Dosage: 100 MG ONCE A DAY PO
     Route: 048
     Dates: start: 20060901, end: 20060929

REACTIONS (14)
  - COGNITIVE DISORDER [None]
  - DEPRESSION [None]
  - DISTURBANCE IN ATTENTION [None]
  - DIZZINESS [None]
  - DRUG INEFFECTIVE [None]
  - HYPERSOMNIA [None]
  - ILL-DEFINED DISORDER [None]
  - INSOMNIA [None]
  - MANIA [None]
  - SELF-INJURIOUS IDEATION [None]
  - STARING [None]
  - SUICIDAL IDEATION [None]
  - THERAPEUTIC RESPONSE UNEXPECTED WITH DRUG SUBSTITUTION [None]
  - THINKING ABNORMAL [None]
